FAERS Safety Report 21547460 (Version 2)
Quarter: 2022Q4

REPORT INFORMATION
  Report Type: Spontaneous
  Country: FR (occurrence: FR)
  Receive Date: 20221103
  Receipt Date: 20221216
  Transmission Date: 20230112
  Serious: Yes (Hospitalization, Other)
  Sender: FDA-Public Use
  Company Number: FR-AMGEN-FRASP2022153786

PATIENT
  Age: 35 Year
  Sex: Female

DRUGS (2)
  1. ADALIMUMAB [Suspect]
     Active Substance: ADALIMUMAB
     Indication: Crohn^s disease
     Dosage: UNK
     Route: 065
  2. AZATHIOPRINE [Concomitant]
     Active Substance: AZATHIOPRINE
     Dosage: 2.5 MILLIGRAM, QD (2.5 MILLIGRAM/KG, QD)
     Route: 065

REACTIONS (9)
  - Gastrointestinal fistula [Recovering/Resolving]
  - Malnutrition [Unknown]
  - Liver abscess [Recovering/Resolving]
  - Morganella infection [Recovering/Resolving]
  - Enterococcal infection [Recovering/Resolving]
  - Anaemia [Recovering/Resolving]
  - Klebsiella infection [Recovering/Resolving]
  - Treatment failure [Unknown]
  - Drug exposure before pregnancy [Recovering/Resolving]
